FAERS Safety Report 19176180 (Version 2)
Quarter: 2021Q3

REPORT INFORMATION
  Report Type: Spontaneous
  Country: DE (occurrence: DE)
  Receive Date: 20210424
  Receipt Date: 20210703
  Transmission Date: 20211014
  Serious: Yes (Other)
  Sender: FDA-Public Use
  Company Number: NVSC2021DE073990

PATIENT
  Sex: Female

DRUGS (1)
  1. GILENYA [Suspect]
     Active Substance: FINGOLIMOD HYDROCHLORIDE
     Indication: MULTIPLE SCLEROSIS
     Dosage: 0.5 MG, QD
     Route: 065
     Dates: start: 2015, end: 20210413

REACTIONS (10)
  - Infection susceptibility increased [Unknown]
  - Cervix carcinoma stage I [Recovered/Resolved]
  - Cystitis [Not Recovered/Not Resolved]
  - Viral infection [Recovered/Resolved]
  - Haemorrhage urinary tract [Unknown]
  - Gastrointestinal infection [Unknown]
  - Abnormal loss of weight [Unknown]
  - Pneumonitis [Recovered/Resolved]
  - Urinary tract infection [Not Recovered/Not Resolved]
  - Influenza [Unknown]

NARRATIVE: CASE EVENT DATE: 2021
